FAERS Safety Report 7657436-5 (Version None)
Quarter: 2011Q3

REPORT INFORMATION
  Report Type: 
  Country: None (occurrence: None)
  Receive Date: 20110804
  Receipt Date: 20110729
  Transmission Date: 20111222
  Serious: Yes (Death, Hospitalization)
  Sender: FDA-Public Use
  Company Number: SG-SANOFI-AVENTIS-2011SA048739

PATIENT
  Age: 37 Year
  Sex: Female

DRUGS (4)
  1. CHLOROQUINE PHOSPHATE [Suspect]
     Indication: SUICIDE ATTEMPT
     Route: 048
  2. FLUVOXAMINE MALEATE [Interacting]
     Indication: DEPRESSION
     Route: 048
  3. ZOLPIDEM [Concomitant]
     Indication: DEPRESSION
     Route: 065
  4. NAPROXEN [Concomitant]
     Route: 065

REACTIONS (14)
  - OVERDOSE [None]
  - CARDIAC ARREST [None]
  - DRUG INTERACTION [None]
  - AGITATION [None]
  - TORSADE DE POINTES [None]
  - RESTLESSNESS [None]
  - LOSS OF CONSCIOUSNESS [None]
  - PULSE ABSENT [None]
  - PNEUMONIA [None]
  - APNOEA [None]
  - NAUSEA [None]
  - VENTRICULAR TACHYCARDIA [None]
  - HYPOKALAEMIA [None]
  - VENTRICULAR FIBRILLATION [None]
